FAERS Safety Report 23694889 (Version 1)
Quarter: 2024Q2

REPORT INFORMATION
  Report Type: Spontaneous
  Country: RO (occurrence: RO)
  Receive Date: 20240402
  Receipt Date: 20240402
  Transmission Date: 20240716
  Serious: Yes (Death, Other)
  Sender: FDA-Public Use
  Company Number: RO-009507513-2403ROU008774

PATIENT
  Age: 48 Year
  Sex: Male

DRUGS (4)
  1. RECARBRIO [Suspect]
     Active Substance: CILASTATIN\IMIPENEM ANHYDROUS\RELEBACTAM ANHYDROUS
     Dosage: UNK
  2. ATM [Concomitant]
  3. AVIBACTAM SODIUM\CEFTAZIDIME [Concomitant]
     Active Substance: AVIBACTAM SODIUM\CEFTAZIDIME
  4. COLISTIN [Concomitant]
     Active Substance: COLISTIN

REACTIONS (3)
  - Death [Fatal]
  - Vasoplegia syndrome [Unknown]
  - Haemofiltration [Unknown]
